FAERS Safety Report 21875523 (Version 1)
Quarter: 2023Q1

REPORT INFORMATION
  Report Type: Spontaneous
  Country: LT (occurrence: LT)
  Receive Date: 20230118
  Receipt Date: 20230118
  Transmission Date: 20230418
  Serious: Yes (Other)
  Sender: FDA-Public Use
  Company Number: LT-SUN PHARMACEUTICAL INDUSTRIES LTD-2023RR-373434

PATIENT
  Age: 30 Year
  Sex: Female

DRUGS (5)
  1. IBUPROFEN [Suspect]
     Active Substance: IBUPROFEN
     Indication: Primary headache associated with sexual activity
     Dosage: 400 MILLIGRAM
     Route: 065
  2. NEBIVOLOL [Suspect]
     Active Substance: NEBIVOLOL
     Indication: Primary headache associated with sexual activity
     Dosage: 5 MILLIGRAM, QD
     Route: 065
     Dates: end: 201909
  3. SUMATRIPTAN [Suspect]
     Active Substance: SUMATRIPTAN
     Indication: Primary headache associated with sexual activity
     Dosage: 50 MILLIGRAM, UNK
     Route: 048
  4. AMITRIPTYLINE [Suspect]
     Active Substance: AMITRIPTYLINE
     Indication: Tachycardia
     Dosage: 25 MILLIGRAM
     Route: 065
  5. AMITRIPTYLINE [Suspect]
     Active Substance: AMITRIPTYLINE
     Indication: Hypotension

REACTIONS (2)
  - Drug ineffective [Unknown]
  - Hypotension [Unknown]
